FAERS Safety Report 22353309 (Version 1)
Quarter: 2023Q2

REPORT INFORMATION
  Report Type: Spontaneous
  Country: US (occurrence: None)
  Receive Date: 20230523
  Receipt Date: 20230523
  Transmission Date: 20230721
  Serious: Yes (Hospitalization)
  Sender: FDA-Public Use
  Company Number: US-SUPERNUS Pharmaceuticals, Inc.-SUP202305-001994

PATIENT
  Age: 32 Year
  Sex: Female

DRUGS (1)
  1. TOPIRAMATE [Suspect]
     Active Substance: TOPIRAMATE
     Indication: Product used for unknown indication
     Dosage: OVERDOSE OF 36 GM

REACTIONS (4)
  - Encephalopathy [Recovering/Resolving]
  - Myoclonus [Recovered/Resolved]
  - Acidosis hyperchloraemic [Unknown]
  - Intentional overdose [Unknown]
